FAERS Safety Report 14556253 (Version 2)
Quarter: 2020Q2

REPORT INFORMATION
  Report Type: Spontaneous
  Country: RU (occurrence: RU)
  Receive Date: 20180221
  Receipt Date: 20200601
  Transmission Date: 20200713
  Serious: Yes (Hospitalization)
  Sender: FDA-Public Use
  Company Number: RU-ROCHE-2071256

PATIENT
  Age: 37 Year
  Sex: Male

DRUGS (5)
  1. CYCLOPHOSPHAMIDE. [Concomitant]
     Active Substance: CYCLOPHOSPHAMIDE
  2. DOXORUBICIN [Concomitant]
     Active Substance: DOXORUBICIN
  3. VINCRISTINE [Concomitant]
     Active Substance: VINCRISTINE
  4. GAZYVA [Suspect]
     Active Substance: OBINUTUZUMAB
     Indication: B-CELL LYMPHOMA
     Route: 065
     Dates: start: 201312
  5. PREDNISOLONE. [Concomitant]
     Active Substance: PREDNISOLONE

REACTIONS (1)
  - Enterovesical fistula [Recovered/Resolved]

NARRATIVE: CASE EVENT DATE: 20141215
